FAERS Safety Report 8315098-8 (Version None)
Quarter: 2012Q1

REPORT INFORMATION
  Report Type: 
  Country: None (occurrence: None)
  Receive Date: 20120315
  Receipt Date: 20110502
  Transmission Date: 20120608
  Serious: Yes (Hospitalization)
  Sender: FDA-Public Use
  Company Number: PHHY2011US36934

PATIENT
  Age: 56 Year
  Sex: Female
  Weight: 81.8 kg

DRUGS (8)
  1. LYRICA [Concomitant]
  2. PHENERGAN HCL [Concomitant]
  3. GILENYA [Suspect]
     Indication: MULTIPLE SCLEROSIS
     Dosage: 0.5 MG, QD, ORAL
     Route: 048
     Dates: start: 20110307, end: 20110411
  4. INSULIN (INSULIN) [Concomitant]
  5. ULTRAM [Concomitant]
  6. ADDERALL XR (AMFETAMINE ASPARTATE, AMFETAMINE SULFATE, DEXAMFETAMINE S [Concomitant]
  7. EFEXOR XR (VENLAFAXINE) [Concomitant]
  8. METFORMIN HCL [Concomitant]

REACTIONS (2)
  - WHITE BLOOD CELL COUNT DECREASED [None]
  - PNEUMONIA [None]
